FAERS Safety Report 20911274 (Version 1)
Quarter: 2022Q2

REPORT INFORMATION
  Report Type: Report from Study
  Country: JP (occurrence: JP)
  Receive Date: 20220603
  Receipt Date: 20220603
  Transmission Date: 20220720
  Serious: Yes (Other)
  Sender: FDA-Public Use
  Company Number: JP-GSKPMS-217893-0032-009

PATIENT

DRUGS (8)
  1. SOTROVIMAB [Suspect]
     Active Substance: SOTROVIMAB
     Indication: COVID-19
     Dosage: 500 MG, 200ML/H(100ML/30MIN)
     Route: 041
     Dates: start: 20220410
  2. TRICHLORMETHIAZIDE [Suspect]
     Active Substance: TRICHLORMETHIAZIDE
     Dosage: UNK
  3. IRBESARTAN [Concomitant]
     Active Substance: IRBESARTAN
     Dosage: UNK
  4. AMLODIPINE BESYLATE [Concomitant]
     Active Substance: AMLODIPINE BESYLATE
     Dosage: UNK
  5. EPLERENONE [Concomitant]
     Active Substance: EPLERENONE
     Dosage: UNK
  6. CARBOCYSTEINE [Concomitant]
     Active Substance: CARBOCYSTEINE
     Indication: COVID-19
     Dosage: UNK
  7. ASTOMIN [Concomitant]
     Indication: COVID-19
     Dosage: UNK
  8. ACETAMINOPHEN [Concomitant]
     Active Substance: ACETAMINOPHEN
     Indication: COVID-19
     Dosage: UNK

REACTIONS (1)
  - Hypokalaemia [Recovered/Resolved]

NARRATIVE: CASE EVENT DATE: 20220410
